FAERS Safety Report 17584883 (Version 4)
Quarter: 2020Q2

REPORT INFORMATION
  Report Type: Report from Study
  Country: US (occurrence: US)
  Receive Date: 20200326
  Receipt Date: 20200514
  Transmission Date: 20200713
  Serious: Yes (Hospitalization, Other)
  Sender: FDA-Public Use
  Company Number: NVSC2020US079208

PATIENT
  Age: 63 Year
  Sex: Female

DRUGS (2)
  1. ENTRESTO [Suspect]
     Active Substance: SACUBITRIL\VALSARTAN
     Indication: CARDIAC FAILURE CONGESTIVE
     Dosage: 1 DF, BID
     Route: 048
     Dates: start: 2018
  2. METOPROLOL. [Concomitant]
     Active Substance: METOPROLOL
     Indication: PRODUCT USED FOR UNKNOWN INDICATION
     Dosage: UNK UNK, 1 TABLET IN AM AND HALF TABLET PM
     Dates: start: 202004

REACTIONS (7)
  - Atrial fibrillation [Recovering/Resolving]
  - Dyspnoea [Recovering/Resolving]
  - Fatigue [Not Recovered/Not Resolved]
  - Stress [Unknown]
  - Weight increased [Unknown]
  - Wrong technique in product usage process [Recovering/Resolving]
  - Ventricular tachycardia [Recovered/Resolved]

NARRATIVE: CASE EVENT DATE: 201901
